FAERS Safety Report 10533996 (Version 5)
Quarter: 2015Q4

REPORT INFORMATION
  Report Type: Report from Study
  Country: JP (occurrence: JP)
  Receive Date: 20141022
  Receipt Date: 20151029
  Transmission Date: 20160304
  Serious: Yes (Other)
  Sender: FDA-Public Use
  Company Number: JP-AMGEN-JPNCT2014081003

PATIENT
  Age: 51 Year
  Sex: Male
  Weight: 73 kg

DRUGS (6)
  1. DENOSUMAB [Suspect]
     Active Substance: DENOSUMAB
     Indication: METASTASES TO BONE
     Dosage: 120 MG, UNK
     Route: 058
     Dates: start: 20130523
  2. INLYTA [Concomitant]
     Active Substance: AXITINIB
     Dosage: 10 MG, QD
     Route: 065
     Dates: start: 20131126
  3. CALCIUM LACTATE [Concomitant]
     Active Substance: CALCIUM LACTATE
     Dosage: 2 G, QD
     Route: 048
     Dates: start: 20130523, end: 20131016
  4. SUNITINIB [Concomitant]
     Active Substance: SUNITINIB
     Dosage: 50 MG, QD
     Route: 065
     Dates: start: 20130719, end: 20131125
  5. ALFAROL [Concomitant]
     Active Substance: ALFACALCIDOL
     Dosage: 0.25 MUG, BID
     Route: 048
     Dates: start: 20130523, end: 20131016
  6. DENOTAS [Concomitant]
     Active Substance: CALCIUM CARBONATE\CHOLECALCIFEROL\MAGNESIUM CARBONATE
     Dosage: UNK
     Route: 048
     Dates: start: 20131017, end: 20140402

REACTIONS (1)
  - Osteonecrosis of jaw [Recovering/Resolving]

NARRATIVE: CASE EVENT DATE: 20140306
